FAERS Safety Report 12064520 (Version 1)
Quarter: 2016Q1

REPORT INFORMATION
  Report Type: Spontaneous
  Country: US (occurrence: US)
  Receive Date: 20160210
  Receipt Date: 20160210
  Transmission Date: 20160526
  Serious: No
  Sender: FDA-Public Use
  Company Number: US-ALLERGAN-1515389US

PATIENT
  Age: 59 Year
  Sex: Female

DRUGS (2)
  1. BOTOX [Suspect]
     Active Substance: ONABOTULINUMTOXINA
     Indication: PRODUCT USED FOR UNKNOWN INDICATION
     Dosage: UNK UNK, SINGLE
     Dates: start: 20150803, end: 20150803
  2. JUVEDERM [Suspect]
     Active Substance: HYALURONIC ACID
     Indication: PRODUCT USED FOR UNKNOWN INDICATION
     Dosage: UNK UNK, SINGLE
     Dates: start: 20150803, end: 20150803

REACTIONS (5)
  - Hypoaesthesia oral [Unknown]
  - Drug administered at inappropriate site [Unknown]
  - Swelling face [Unknown]
  - Lip pain [Unknown]
  - Injection site oedema [Unknown]

NARRATIVE: CASE EVENT DATE: 20150803
